FAERS Safety Report 8992482 (Version 27)
Quarter: 2021Q2

REPORT INFORMATION
  Report Type: Report from Study
  Country: CA (occurrence: CA)
  Receive Date: 20121231
  Receipt Date: 20210520
  Transmission Date: 20210717
  Serious: Yes (Death, Hospitalization, Other)
  Sender: FDA-Public Use
  Company Number: PHHY2012CA120903

PATIENT
  Age: 51 Year
  Sex: Male

DRUGS (6)
  1. SANDOSTATIN LAR DEPOT [Suspect]
     Active Substance: OCTREOTIDE ACETATE
     Dosage: 30 MG, QMO
     Route: 030
     Dates: start: 20141114, end: 20160607
  2. SANDOSTATIN LAR DEPOT [Suspect]
     Active Substance: OCTREOTIDE ACETATE
     Indication: NEUROENDOCRINE TUMOUR
     Dosage: 20 MG, QMO
     Route: 030
     Dates: start: 20121114, end: 20121114
  3. SANDOSTATIN LAR DEPOT [Suspect]
     Active Substance: OCTREOTIDE ACETATE
     Dosage: 20 MG, QMO
     Route: 030
     Dates: start: 20201216
  4. SANDOSTATIN LAR DEPOT [Suspect]
     Active Substance: OCTREOTIDE ACETATE
     Dosage: 20 MG, Q4W
     Route: 030
     Dates: start: 20210301
  5. SANDOSTATIN LAR DEPOT [Suspect]
     Active Substance: OCTREOTIDE ACETATE
     Indication: CARCINOID TUMOUR
     Dosage: 30 MG, QMO
     Route: 030
     Dates: start: 20140607, end: 20141113
  6. 5?FU [Concomitant]
     Active Substance: FLUOROURACIL
     Indication: PRODUCT USED FOR UNKNOWN INDICATION
     Dosage: UNK
     Route: 065

REACTIONS (25)
  - Diabetic complication [Recovering/Resolving]
  - Decreased immune responsiveness [Unknown]
  - Asthenia [Unknown]
  - Influenza [Unknown]
  - Device failure [Unknown]
  - Increased appetite [Unknown]
  - Blood glucose abnormal [Unknown]
  - Muscular weakness [Unknown]
  - Palmar-plantar erythrodysaesthesia syndrome [Unknown]
  - Death [Fatal]
  - Peripheral coldness [Unknown]
  - Dry mouth [Recovering/Resolving]
  - Blood glucose increased [Unknown]
  - Haemorrhoids [Unknown]
  - Gait inability [Unknown]
  - Arthralgia [Unknown]
  - Abdominal pain [Unknown]
  - Polyuria [Recovering/Resolving]
  - Weight decreased [Unknown]
  - Gastroenteritis viral [Unknown]
  - Pain in extremity [Unknown]
  - Pain [Unknown]
  - Diverticulitis [Unknown]
  - Diabetes mellitus inadequate control [Unknown]
  - Blood pressure systolic increased [Unknown]

NARRATIVE: CASE EVENT DATE: 20121118
